FAERS Safety Report 6828737-5 (Version None)
Quarter: 2010Q3

REPORT INFORMATION
  Report Type: 
  Country: None (occurrence: None)
  Receive Date: 20100709
  Receipt Date: 20070517
  Transmission Date: 20110219
  Serious: No
  Sender: FDA-Public Use
  Company Number: US-PFIZER INC-2007013310

PATIENT
  Age: 49 Year
  Sex: Female
  Weight: 103.87 kg

DRUGS (7)
  1. CHANTIX [Suspect]
     Indication: SMOKING CESSATION THERAPY
     Route: 048
     Dates: start: 20070201
  2. MONTELUKAST [Concomitant]
  3. ADVAIR DISKUS 100/50 [Concomitant]
  4. ASTELIN [Concomitant]
  5. ALLEGRA [Concomitant]
  6. THYROID TAB [Concomitant]
  7. LEXAPRO [Concomitant]

REACTIONS (4)
  - ANGER [None]
  - CRYING [None]
  - FEELING ABNORMAL [None]
  - HYPERHIDROSIS [None]
